FAERS Safety Report 6527150-8 (Version None)
Quarter: 2010Q1

REPORT INFORMATION
  Report Type: 
  Country: None (occurrence: None)
  Receive Date: 20100105
  Receipt Date: 20100104
  Transmission Date: 20100710
  Serious: Yes (Death)
  Sender: FDA-Public Use
  Company Number: A0815405A

PATIENT
  Age: 55 Year
  Sex: Male
  Weight: 95.5 kg

DRUGS (8)
  1. ZOFRAN [Suspect]
     Indication: NAUSEA
     Dosage: 4MG AS REQUIRED
     Route: 048
     Dates: start: 20091008
  2. MORPHINE [Concomitant]
  3. ALDACTONE [Concomitant]
  4. LASIX [Concomitant]
  5. NADOLOL [Concomitant]
  6. AMBIEN [Concomitant]
  7. ATIVAN [Concomitant]
  8. DILAUDID [Concomitant]

REACTIONS (1)
  - HEPATIC NEOPLASM MALIGNANT [None]
